FAERS Safety Report 25735573 (Version 1)
Quarter: 2025Q3

REPORT INFORMATION
  Report Type: Spontaneous
  Country: US (occurrence: None)
  Receive Date: 20250828
  Receipt Date: 20250828
  Transmission Date: 20251020
  Serious: Yes (Hospitalization)
  Sender: FDA-CTU
  Company Number: None

PATIENT
  Age: 18 Year
  Sex: Female

DRUGS (5)
  1. PREVYMIS [Suspect]
     Active Substance: LETERMOVIR
     Route: 048
  2. MENOPUR [Concomitant]
     Active Substance: FOLLITROPIN\LUTEINIZING HORMONE
  3. MENOPUR INJ 75UNIT [Concomitant]
  4. NOVAREL [Concomitant]
     Active Substance: CHORIOGONADOTROPIN ALFA
  5. NOVAREL INJ 5000UNIT [Concomitant]

REACTIONS (1)
  - Stem cell transplant [None]

NARRATIVE: CASE EVENT DATE: 20250726
